FAERS Safety Report 5867581-2 (Version None)
Quarter: 2008Q3

REPORT INFORMATION
  Report Type: 
  Country: None (occurrence: None)
  Receive Date: 20080902
  Receipt Date: 20071114
  Transmission Date: 20090109
  Serious: No
  Sender: FDA-Public Use
  Company Number: US-ABBOTT-07P-163-0425465-00

PATIENT
  Sex: Female
  Weight: 42.676 kg

DRUGS (10)
  1. DEPAKOTE ER [Suspect]
     Indication: COMPLEX PARTIAL SEIZURES
     Route: 048
     Dates: start: 20040801
  2. DEPAKOTE ER [Suspect]
     Indication: MIGRAINE
     Route: 048
  3. DEPAKOTE ER [Suspect]
     Route: 048
  4. ATOMOXETINE HCL [Suspect]
     Indication: ATTENTION DEFICIT/HYPERACTIVITY DISORDER
     Route: 048
     Dates: start: 20050101, end: 20050101
  5. TOPIRAMATE [Suspect]
     Indication: MIGRAINE
     Route: 048
     Dates: end: 20071115
  6. TOPIRAMATE [Suspect]
     Route: 048
     Dates: end: 20071115
  7. METHOTREXATE [Concomitant]
     Indication: DRUG USE FOR UNKNOWN INDICATION
  8. MELOXICAM [Concomitant]
     Indication: DRUG USE FOR UNKNOWN INDICATION
  9. FOLIC ACID [Concomitant]
     Indication: DRUG USE FOR UNKNOWN INDICATION
  10. M.V.I. [Concomitant]
     Indication: DRUG USE FOR UNKNOWN INDICATION

REACTIONS (11)
  - APHASIA [None]
  - CONFUSIONAL STATE [None]
  - CONVULSION [None]
  - DRUG TOXICITY [None]
  - FEELING ABNORMAL [None]
  - GASTRIC DISORDER [None]
  - HEMICEPHALALGIA [None]
  - MIGRAINE [None]
  - PHOTOPHOBIA [None]
  - TREMOR [None]
  - WEIGHT DECREASED [None]
